FAERS Safety Report 10610779 (Version 1)
Quarter: 2014Q4

REPORT INFORMATION
  Report Type: Spontaneous
  Country: US (occurrence: US)
  Receive Date: 20141126
  Receipt Date: 20141126
  Transmission Date: 20150529
  Serious: Yes (Other)
  Sender: FDA-Public Use
  Company Number: US-MALLINCKRODT-T201404131

PATIENT
  Age: 11 Year
  Sex: Male

DRUGS (2)
  1. GABLOFEN [Suspect]
     Active Substance: BACLOFEN
     Indication: MUSCLE SPASTICITY
     Dosage: 150 MCG/DAY
     Route: 037
     Dates: start: 20141110, end: 20141111
  2. GABLOFEN [Suspect]
     Active Substance: BACLOFEN
     Dosage: 349.9 MCG/DAY
     Route: 037
     Dates: end: 20141110

REACTIONS (2)
  - Seizure [Unknown]
  - Device failure [Recovered/Resolved]

NARRATIVE: CASE EVENT DATE: 20141108
